FAERS Safety Report 14181016 (Version 1)
Quarter: 2017Q4

REPORT INFORMATION
  Report Type: Spontaneous
  Country: US (occurrence: US)
  Receive Date: 20171110
  Receipt Date: 20171110
  Transmission Date: 20180321
  Serious: Yes (Disabling, Other)
  Sender: FDA-Public Use
  Company Number: None

PATIENT
  Age: 41 Year
  Sex: Female
  Weight: 54 kg

DRUGS (4)
  1. VITAMIN MULTI WITH BCOMPLEX [Concomitant]
  2. VITAMIN C [Concomitant]
     Active Substance: ASCORBIC ACID
  3. VITAMIN D3 [Concomitant]
     Active Substance: CHOLECALCIFEROL
  4. CORTICOSTEROID CREAM AND SPRAY (CLOBETASOL) [Suspect]
     Active Substance: CLOBETASOL PROPIONATE
     Indication: ECZEMA
     Dosage: QUANTITY:1 OUNCE(S);?
     Route: 061

REACTIONS (18)
  - Pruritus [None]
  - Feeling jittery [None]
  - Facial paralysis [None]
  - Erythema [None]
  - Laceration [None]
  - Therapeutic response decreased [None]
  - Hormone level abnormal [None]
  - Pain of skin [None]
  - Skin burning sensation [None]
  - Eczema [None]
  - Headache [None]
  - Monoplegia [None]
  - Skin haemorrhage [None]
  - Sleep disorder [None]
  - Movement disorder [None]
  - Emotional disorder [None]
  - Skin tightness [None]
  - Skin atrophy [None]

NARRATIVE: CASE EVENT DATE: 20041001
